FAERS Safety Report 8914705 (Version 3)
Quarter: 2012Q4

REPORT INFORMATION
  Report Type: 
  Country: US (occurrence: US)
  Receive Date: 20121119
  Receipt Date: 20121226
  Transmission Date: 20130627
  Serious: Yes (Death)
  Sender: FDA-Public Use
  Company Number: US-PURDUE-USA-2012-0095979

PATIENT
  Age: 58 Year
  Sex: Male
  Weight: 87.08 kg

DRUGS (10)
  1. ZOLPIDEM TARTRATE [Suspect]
     Indication: COMPLETED SUICIDE
  2. METAXALONE [Suspect]
     Indication: COMPLETED SUICIDE
  3. CITALOPRAM [Suspect]
     Indication: COMPLETED SUICIDE
  4. DIPHENHYDRAMINE [Suspect]
     Indication: COMPLETED SUICIDE
  5. CARISOPRODOL [Suspect]
     Indication: COMPLETED SUICIDE
  6. TEMAZEPAM [Suspect]
     Indication: COMPLETED SUICIDE
  7. HYDROCODONE [Suspect]
     Indication: COMPLETED SUICIDE
  8. PROMETHAZINE [Suspect]
     Indication: COMPLETED SUICIDE
  9. MEPROBAMATE [Concomitant]
     Indication: PRODUCT USED FOR UNKNOWN INDICATION
  10. ACETAMINOPHEN [Concomitant]
     Indication: PRODUCT USED FOR UNKNOWN INDICATION

REACTIONS (1)
  - Intentional overdose [Fatal]
